FAERS Safety Report 4682071-0 (Version None)
Quarter: 2005Q2

REPORT INFORMATION
  Report Type: 
  Country: None (occurrence: None)
  Receive Date: 20050602
  Receipt Date: 20050525
  Transmission Date: 20051028
  Serious: Yes (Hospitalization)
  Sender: FDA-Public Use
  Company Number: 200510125BYL

PATIENT
  Age: 69 Year
  Sex: Male
  Weight: 45 kg

DRUGS (7)
  1. ASPIRIN [Suspect]
     Indication: THROMBOSIS PROPHYLAXIS
     Dosage: 100 MG, QD, ORAL
     Route: 048
     Dates: start: 20030527, end: 20030701
  2. TICLOPIDINE HCL [Suspect]
     Indication: THROMBOSIS PROPHYLAXIS
     Dosage: 100 MG, BID, ORAL
     Route: 048
     Dates: start: 20030527, end: 20030623
  3. SIMVASTATIN [Suspect]
     Indication: HYPERLIPIDAEMIA
     Dosage: 5 MG, QD, ORAL
     Route: 048
     Dates: start: 20030528, end: 20030623
  4. ISOSORBIDE MONONITRATE [Suspect]
     Indication: ANGINA PECTORIS
     Dosage: 20 MG, BID, ORAL
     Route: 048
     Dates: start: 20030727, end: 20030623
  5. GASTER [Concomitant]
  6. COSPANON [Concomitant]
  7. SELBEX [Concomitant]

REACTIONS (3)
  - CORONARY ARTERY RESTENOSIS [None]
  - FATIGUE [None]
  - LIVER DISORDER [None]
